FAERS Safety Report 15980054 (Version 2)
Quarter: 2019Q2

REPORT INFORMATION
  Report Type: Spontaneous
  Country: US (occurrence: US)
  Receive Date: 20190219
  Receipt Date: 20190418
  Transmission Date: 20190711
  Serious: No
  Sender: FDA-Public Use
  Company Number: US-GLENMARK PHARMACEUTICALS-2018GMK038848

PATIENT

DRUGS (1)
  1. MUPIROCIN. [Suspect]
     Active Substance: MUPIROCIN
     Indication: SKIN INFECTION
     Dosage: UNK, QID (IN THE FACE UNDER THE EYES)
     Route: 061
     Dates: start: 20181221

REACTIONS (6)
  - Skin sensitisation [Unknown]
  - Inappropriate schedule of product administration [Unknown]
  - Skin burning sensation [Unknown]
  - Drug ineffective [Unknown]
  - Skin haemorrhage [Unknown]
  - Skin exfoliation [Unknown]
